FAERS Safety Report 6403055-8 (Version None)
Quarter: 2009Q4

REPORT INFORMATION
  Report Type: 
  Country: None (occurrence: None)
  Receive Date: 20091013
  Receipt Date: 20091002
  Transmission Date: 20100525
  Serious: Yes (Hospitalization)
  Sender: FDA-Public Use
  Company Number: 2009AL006400

PATIENT
  Age: 60 Year
  Sex: Male

DRUGS (19)
  1. OXYCODONE HCL [Suspect]
     Indication: PAIN
     Dosage: 50 MG; BID; PO
     Route: 048
     Dates: start: 20081107
  2. BEVACIZUMAB [Concomitant]
  3. CARBOPLATIN [Concomitant]
  4. PACLITAXEL [Concomitant]
  5. PREDNISOLONE [Concomitant]
  6. ALBUTEROL [Concomitant]
  7. SODIUM CHLORIDE [Concomitant]
  8. NULYTELY [Concomitant]
  9. OXYNORM [Concomitant]
  10. DICLOFENAC [Concomitant]
  11. OMEPRAZOLE [Concomitant]
  12. MICROLAX [Concomitant]
  13. ZOPICLONE [Concomitant]
  14. VITAMIN B COMPLEX CAP [Concomitant]
  15. BENDROFLUAZIDE [Concomitant]
  16. ATROVENT [Concomitant]
  17. AMITRIPTYLINE [Concomitant]
  18. ANUSOL [Concomitant]
  19. PREDNISOLONE [Concomitant]

REACTIONS (5)
  - CHEST DISCOMFORT [None]
  - LOWER RESPIRATORY TRACT INFECTION [None]
  - NASOPHARYNGITIS [None]
  - NEUROPATHY PERIPHERAL [None]
  - PROCTALGIA [None]
